FAERS Safety Report 4708622-5 (Version None)
Quarter: 2005Q3

REPORT INFORMATION
  Report Type: 
  Country: None (occurrence: None)
  Receive Date: 20050706
  Receipt Date: 20050624
  Transmission Date: 20060218
  Serious: Yes (Hospitalization, Other)
  Sender: FDA-Public Use
  Company Number: NLWYE791604JUL05

PATIENT
  Age: 59 Year

DRUGS (8)
  1. RAPAMUNE [Suspect]
     Indication: PROPHYLAXIS AGAINST TRANSPLANT REJECTION
     Dosage: 1 MG 1X PER 1 DAY; ORAL
     Route: 048
     Dates: start: 20040211
  2. PREDNISONE TAB [Concomitant]
  3. ATORVASTATIN CALCIUM [Concomitant]
  4. ENALAPRIL MALEATE [Concomitant]
  5. SOTALOL HCL [Concomitant]
  6. EZETROL (EZETIMIBE) [Concomitant]
  7. ASCAL (ACETYLSALICYLATE CALCIUM) [Concomitant]
  8. ... [Concomitant]

REACTIONS (2)
  - CORONARY ARTERY INSUFFICIENCY [None]
  - VENTRICULAR DYSFUNCTION [None]
